FAERS Safety Report 22304760 (Version 1)
Quarter: 2023Q2

REPORT INFORMATION
  Report Type: Spontaneous
  Country: US (occurrence: None)
  Receive Date: 20230509
  Receipt Date: 20230509
  Transmission Date: 20230722
  Serious: Yes (unspecified)
  Sender: FDA-Public Use
  Company Number: None

PATIENT
  Age: 44 Year
  Sex: Female
  Weight: 101.25 kg

DRUGS (9)
  1. SEMAGLUTIDE [Suspect]
     Active Substance: SEMAGLUTIDE
     Indication: Weight decreased
     Dosage: FREQUENCY : WEEKLY;?
     Route: 058
     Dates: start: 20230126, end: 20230403
  2. MINIVELLE [Concomitant]
     Active Substance: ESTRADIOL
  3. PROGESTERONE [Concomitant]
     Active Substance: PROGESTERONE
  4. LEVOTHYROXINE [Concomitant]
     Active Substance: LEVOTHYROXINE
  5. ARMOUR THYROID [Concomitant]
     Active Substance: THYROID, PORCINE
  6. SPIRONOLACTONE [Concomitant]
     Active Substance: SPIRONOLACTONE
  7. SUMATRIPTAN [Concomitant]
     Active Substance: SUMATRIPTAN
  8. Advocare Spark [Concomitant]
  9. Ovasitol Inositol powder [Concomitant]

REACTIONS (10)
  - Hepatic enzyme increased [None]
  - Blood alkaline phosphatase increased [None]
  - Aspartate aminotransferase increased [None]
  - Alanine aminotransferase increased [None]
  - Abdominal pain upper [None]
  - Abdominal distension [None]
  - Vomiting [None]
  - Back pain [None]
  - Pain [None]
  - Movement disorder [None]

NARRATIVE: CASE EVENT DATE: 20230331
